FAERS Safety Report 6907394-3 (Version None)
Quarter: 2010Q3

REPORT INFORMATION
  Report Type: 
  Country: None (occurrence: None)
  Receive Date: 20100805
  Receipt Date: 20100722
  Transmission Date: 20110219
  Serious: Yes (Disabling)
  Sender: FDA-Public Use
  Company Number: US-RANBAXY-2010US-36304

PATIENT

DRUGS (8)
  1. CALAN [Suspect]
     Indication: HYPERTENSION
     Dosage: 240 MG, BID
     Route: 065
  2. CALAN [Suspect]
     Dosage: 240MG 1 AND HALF TABLET
     Route: 065
  3. CALAN [Suspect]
     Dosage: 240MG,QD
     Route: 065
  4. CALAN [Suspect]
     Dosage: 240MG 1 AND HALF TABLET
     Route: 065
  5. VERAPAMIL [Suspect]
     Indication: HYPERTENSION
     Route: 065
  6. LIPITOR [Concomitant]
     Indication: BLOOD CHOLESTEROL INCREASED
     Route: 065
  7. METOPROLOL [Concomitant]
     Indication: PRODUCT USED FOR UNKNOWN INDICATION
     Route: 065
  8. DILTIAZEM [Concomitant]
     Indication: PRODUCT USED FOR UNKNOWN INDICATION
     Route: 065

REACTIONS (5)
  - BLOOD PRESSURE INCREASED [None]
  - INFECTION [None]
  - MEDICATION ERROR [None]
  - ROAD TRAFFIC ACCIDENT [None]
  - WEIGHT DECREASED [None]
